FAERS Safety Report 10782781 (Version 1)
Quarter: 2015Q1

REPORT INFORMATION
  Report Type: Spontaneous
  Country: US (occurrence: US)
  Receive Date: 20150210
  Receipt Date: 20150210
  Transmission Date: 20150721
  Serious: Yes (Hospitalization, Other)
  Sender: FDA-Public Use
  Company Number: US-PFIZER INC-2015049722

PATIENT
  Age: 76 Year
  Sex: Male
  Weight: 61 kg

DRUGS (1)
  1. ADVIL [Suspect]
     Active Substance: IBUPROFEN
     Indication: PAIN
     Dosage: TWO AT A TIME, SOMETINES TWICE A DAY
     Dates: end: 201501

REACTIONS (10)
  - Gastric haemorrhage [Unknown]
  - Circulatory collapse [Unknown]
  - Intestinal ulcer [Not Recovered/Not Resolved]
  - Apparent death [Unknown]
  - Blood pressure decreased [Unknown]
  - Dyspnoea [Unknown]
  - Asthenia [Unknown]
  - Body temperature fluctuation [Unknown]
  - Gastrointestinal disorder [Unknown]
  - Urinary tract infection [Unknown]

NARRATIVE: CASE EVENT DATE: 20150124
